FAERS Safety Report 24528943 (Version 3)
Quarter: 2025Q1

REPORT INFORMATION
  Report Type: Spontaneous
  Country: US (occurrence: US)
  Receive Date: 20241021
  Receipt Date: 20250128
  Transmission Date: 20250409
  Serious: No
  Sender: PFIZER
  Company Number: US-PFIZER INC-202400280034

PATIENT
  Age: 55 Year
  Sex: Female

DRUGS (8)
  1. VELSIPITY [Suspect]
     Active Substance: ETRASIMOD ARGININE
     Route: 048
  2. VITAMIN D NOS [Concomitant]
     Active Substance: CHOLECALCIFEROL\ERGOCALCIFEROL
  3. MIRTAZAPINE [Concomitant]
     Active Substance: MIRTAZAPINE
  4. EFFEXOR [Concomitant]
     Active Substance: VENLAFAXINE HYDROCHLORIDE
  5. ZOLPIDEM [Concomitant]
     Active Substance: ZOLPIDEM TARTRATE
  6. ALPRAZOLAM [Concomitant]
     Active Substance: ALPRAZOLAM
  7. LISINOPRIL [Concomitant]
     Active Substance: LISINOPRIL
  8. METFORMIN [Concomitant]
     Active Substance: METFORMIN HYDROCHLORIDE

REACTIONS (1)
  - Poor quality sleep [Unknown]
